FAERS Safety Report 4777325-3 (Version None)
Quarter: 2005Q3

REPORT INFORMATION
  Report Type: 
  Country: None (occurrence: None)
  Receive Date: 20050915
  Receipt Date: 20050831
  Transmission Date: 20060218
  Serious: Yes (Hospitalization)
  Sender: FDA-Public Use
  Company Number: 2005PV001436

PATIENT
  Age: 63 Year
  Sex: Female
  Weight: 101.6057 kg

DRUGS (13)
  1. SYMLIN [Suspect]
     Indication: DIABETES MELLITUS NON-INSULIN-DEPENDENT
     Dosage: 15 MCG;TID;SC
     Route: 058
     Dates: start: 20050817, end: 20050817
  2. LANTUS [Suspect]
     Dosage: 60 UNITS;BID;SC
     Route: 058
     Dates: start: 20020101
  3. NOVOLOG [Concomitant]
  4. LIPITOR [Concomitant]
  5. LASIX [Concomitant]
  6. BENICAR [Concomitant]
  7. FEMARA [Concomitant]
  8. LISINOPRIL [Concomitant]
  9. TOPROL-XL [Concomitant]
  10. NORVASC [Concomitant]
  11. PROTONIX [Concomitant]
  12. ASPIRIN [Concomitant]
  13. FOLTRIN [Concomitant]

REACTIONS (32)
  - AORTIC VALVE INCOMPETENCE [None]
  - ASTHENIA [None]
  - BACTERAEMIA [None]
  - BLOOD CREATINE PHOSPHOKINASE INCREASED [None]
  - BLOOD GLUCOSE DECREASED [None]
  - CARDIAC FAILURE CONGESTIVE [None]
  - DEPRESSED LEVEL OF CONSCIOUSNESS [None]
  - DIABETES MELLITUS INADEQUATE CONTROL [None]
  - DIARRHOEA [None]
  - DILATATION ATRIAL [None]
  - DIZZINESS [None]
  - EATING DISORDER [None]
  - FALL [None]
  - FATIGUE [None]
  - FEELING ABNORMAL [None]
  - HYPOGLYCAEMIA [None]
  - HYPOVOLAEMIA [None]
  - HYPOXIA [None]
  - JOINT SPRAIN [None]
  - MITRAL VALVE INCOMPETENCE [None]
  - NAUSEA [None]
  - PAIN IN EXTREMITY [None]
  - PNEUMONIA [None]
  - PYURIA [None]
  - RENAL FAILURE ACUTE [None]
  - SEPSIS [None]
  - THROMBOCYTOPENIA [None]
  - TRICUSPID VALVE INCOMPETENCE [None]
  - TROPONIN INCREASED [None]
  - URINARY TRACT INFECTION [None]
  - URINE OUTPUT DECREASED [None]
  - VOMITING [None]
